FAERS Safety Report 14978707 (Version 1)
Quarter: 2018Q2

REPORT INFORMATION
  Report Type: Spontaneous
  Country: DE (occurrence: DE)
  Receive Date: 20180606
  Receipt Date: 20180606
  Transmission Date: 20180711
  Serious: Yes (Hospitalization)
  Sender: FDA-Public Use
  Company Number: DE-TEVA-2018-DE-901794

PATIENT
  Age: 81 Year
  Sex: Female
  Weight: 90 kg

DRUGS (14)
  1. INUVAIR [Concomitant]
     Active Substance: BECLOMETHASONE DIPROPIONATE\FORMOTEROL FUMARATE
     Dosage: 100|6 MG, BEDARF
     Route: 048
  2. TORASEMIDE [Suspect]
     Active Substance: TORSEMIDE
     Dosage: 5 MG, 2-0-0-0
     Route: 048
  3. PANTOPRAZOL [Concomitant]
     Active Substance: PANTOPRAZOLE SODIUM
     Dosage: 20 MG, 1-0-1-0
     Route: 048
  4. DECORTIN [Suspect]
     Active Substance: PREDNISONE
     Dosage: 50 MG, 1-0-0-0
     Route: 048
  5. METOBETA [Suspect]
     Active Substance: METOPROLOL TARTRATE
     Dosage: 50 MG, 1-0-1-0
     Route: 048
  6. LYRICA [Suspect]
     Active Substance: PREGABALIN
     Dosage: 150 MG, 1-0-1-0
     Route: 048
  7. DOXYCYCLIN [Concomitant]
     Active Substance: DOXYCYCLINE
     Dosage: 100 MG, 1-0-0-0
     Route: 048
  8. RAMIPRIL. [Concomitant]
     Active Substance: RAMIPRIL
     Dosage: 5 MG, 1-0-0-0
     Route: 048
  9. L-THYROXIN [Concomitant]
     Active Substance: LEVOTHYROXINE SODIUM
     Dosage: 150 MG, 1-0-0-0
     Route: 048
  10. CALCIUM CARBONATE. [Concomitant]
     Active Substance: CALCIUM CARBONATE
     Dosage: 1000 MG, 1-1-0-0
     Route: 048
  11. PROTAPHANE [Suspect]
     Active Substance: INSULIN HUMAN
     Dosage: 10|3 ML, NACH SCHEMA
     Route: 058
  12. ACETYLSALICYLSAEURE [Concomitant]
     Active Substance: ASPIRIN
     Dosage: 100 MG, 1-0-0-0
     Route: 048
  13. VIGANTOLETTEN [Concomitant]
     Active Substance: CHOLECALCIFEROL
     Dosage: 1000 IE, 1-0-0-0
     Route: 048
  14. JANUVIA [Concomitant]
     Active Substance: SITAGLIPTIN PHOSPHATE
     Dosage: 25 MG, 0-0-0.5-0
     Route: 048

REACTIONS (4)
  - Tremor [Unknown]
  - Muscular weakness [Unknown]
  - Fatigue [Unknown]
  - Confusional state [Unknown]
